FAERS Safety Report 6479935-4 (Version None)
Quarter: 2009Q4

REPORT INFORMATION
  Report Type: 
  Country: None (occurrence: None)
  Receive Date: 20091208
  Receipt Date: 20091118
  Transmission Date: 20100525
  Serious: Yes (Death)
  Sender: FDA-Public Use
  Company Number: IT-SANOFI-AVENTIS-2009SA002545

PATIENT

DRUGS (1)
  1. LANTUS [Suspect]
     Indication: COMPLETED SUICIDE
     Route: 065

REACTIONS (1)
  - COMPLETED SUICIDE [None]
